FAERS Safety Report 11425095 (Version 1)
Quarter: 2015Q3

REPORT INFORMATION
  Report Type: Spontaneous
  Country: US (occurrence: US)
  Receive Date: 20150827
  Receipt Date: 20150827
  Transmission Date: 20151125
  Serious: Yes (Other)
  Sender: FDA-Public Use
  Company Number: PHHY2015US102900

PATIENT
  Age: 49 Year
  Sex: Male

DRUGS (15)
  1. ALBUTEROL HFA [Concomitant]
     Active Substance: ALBUTEROL SULFATE
     Indication: COUGH
     Route: 055
  2. ALBUTEROL HFA [Concomitant]
     Active Substance: ALBUTEROL SULFATE
     Indication: DYSPNOEA
  3. HIDROXIZIN [Concomitant]
     Active Substance: HYDROXYZINE HYDROCHLORIDE
     Indication: ECZEMA
     Route: 065
  4. LORATADINA + PSEUDOEFEDRINA        /01011501/ [Concomitant]
     Indication: COUGH
     Dosage: 10 MG, QD
     Route: 065
  5. FLUTICASONE+SALMETEROL [Suspect]
     Active Substance: FLUTICASONE PROPIONATE\SALMETEROL XINAFOATE
     Indication: SEASONAL ALLERGY
     Dosage: 250 UG, QD
     Route: 065
  6. LORATADINA + PSEUDOEFEDRINA        /01011501/ [Concomitant]
     Indication: WHEEZING
     Dosage: 240 MG, QD
     Route: 065
  7. PRAVASTATIN [Concomitant]
     Active Substance: PRAVASTATIN\PRAVASTATIN SODIUM
     Indication: PRODUCT USED FOR UNKNOWN INDICATION
     Dosage: 40 MG, QD
     Route: 065
  8. FLUTICASONE+SALMETEROL [Suspect]
     Active Substance: FLUTICASONE PROPIONATE\SALMETEROL XINAFOATE
     Dosage: 50 MG, QD
     Route: 065
  9. CLOBETASOL [Suspect]
     Active Substance: CLOBETASOL
     Indication: ECZEMA
     Route: 061
  10. ALBUTEROL HFA [Concomitant]
     Active Substance: ALBUTEROL SULFATE
     Indication: WHEEZING
  11. LORATADINA + PSEUDOEFEDRINA        /01011501/ [Concomitant]
     Indication: DYSPNOEA
  12. BUPROPION. [Concomitant]
     Active Substance: BUPROPION
     Indication: PRODUCT USED FOR UNKNOWN INDICATION
     Dosage: 300 MG, QD
     Route: 065
  13. OMEPRAZOLE. [Concomitant]
     Active Substance: OMEPRAZOLE
     Indication: PRODUCT USED FOR UNKNOWN INDICATION
     Dosage: 20 MG, QD
     Route: 065
  14. MONTELUKAST SODIUM. [Suspect]
     Active Substance: MONTELUKAST SODIUM
     Indication: SEASONAL ALLERGY
     Dosage: 10 MG, QD
     Route: 065
  15. MOMETASONE [Suspect]
     Active Substance: MOMETASONE
     Indication: SEASONAL ALLERGY
     Route: 045

REACTIONS (1)
  - Chorioretinopathy [Recovered/Resolved]
